FAERS Safety Report 6490301-8 (Version None)
Quarter: 2009Q4

REPORT INFORMATION
  Report Type: 
  Country: None (occurrence: None)
  Receive Date: 20091211
  Receipt Date: 20091015
  Transmission Date: 20100525
  Serious: Yes (Other)
  Sender: FDA-Public Use
  Company Number: US-ELI_LILLY_AND_COMPANY-US200909006614

PATIENT
  Sex: Female

DRUGS (2)
  1. PROZAC [Suspect]
     Dosage: 1 D/F, UNKNOWN
     Route: 065
  2. AROMASIN [Concomitant]
     Dosage: 1 D/F, UNK

REACTIONS (1)
  - BREAST ENLARGEMENT [None]
